FAERS Safety Report 6381141-9 (Version None)
Quarter: 2009Q3

REPORT INFORMATION
  Report Type: 
  Country: None (occurrence: None)
  Receive Date: 20090929
  Receipt Date: 20090917
  Transmission Date: 20100115
  Serious: Yes (Hospitalization)
  Sender: FDA-Public Use
  Company Number: ES-ELI_LILLY_AND_COMPANY-ES200909000778

PATIENT
  Sex: Female

DRUGS (7)
  1. FORTEO [Suspect]
     Indication: OSTEOPOROSIS
     Dosage: 20 UG, UNKNOWN
     Route: 058
     Dates: end: 20090101
  2. CORTISONE [Concomitant]
  3. DACORTIN [Concomitant]
  4. EUTIROX [Concomitant]
  5. DAFLON [Concomitant]
  6. CALCIUM [Concomitant]
  7. FERRO SANOL [Concomitant]

REACTIONS (4)
  - ABDOMINAL PAIN UPPER [None]
  - BLOOD TEST ABNORMAL [None]
  - IRON DEFICIENCY ANAEMIA [None]
  - PYREXIA [None]
